FAERS Safety Report 21717025 (Version 1)
Quarter: 2022Q4

REPORT INFORMATION
  Report Type: Spontaneous
  Country: US (occurrence: US)
  Receive Date: 20221212
  Receipt Date: 20221212
  Transmission Date: 20230113
  Serious: No
  Sender: FDA-Public Use
  Company Number: US-Global Blood Therapeutics Inc-US-GBT-22-02620

PATIENT
  Age: 17 Year
  Sex: Male

DRUGS (2)
  1. OXBRYTA [Suspect]
     Active Substance: VOXELOTOR
     Indication: Sickle cell disease
     Route: 048
     Dates: start: 202112
  2. COVID VACCINATION [Concomitant]
     Indication: COVID-19
     Dosage: NOT PROVIDED
     Dates: start: 202204

REACTIONS (2)
  - Sickle cell anaemia with crisis [Unknown]
  - Adverse event following immunisation [Unknown]

NARRATIVE: CASE EVENT DATE: 20220427
